FAERS Safety Report 17210243 (Version 1)
Quarter: 2019Q4

REPORT INFORMATION
  Report Type: Spontaneous
  Country: NL (occurrence: HU)
  Receive Date: 20191227
  Receipt Date: 20191227
  Transmission Date: 20200122
  Serious: Yes (Death, Hospitalization, Other)
  Sender: FDA-Public Use
  Company Number: HU-FRESENIUS KABI-FK201914299

PATIENT
  Age: 65 Year
  Weight: 92 kg

DRUGS (20)
  1. PANCREATIN [Concomitant]
     Active Substance: PANCRELIPASE
     Indication: PRODUCT USED FOR UNKNOWN INDICATION
     Route: 065
  2. CARVEDILOL. [Suspect]
     Active Substance: CARVEDILOL
     Indication: PRODUCT USED FOR UNKNOWN INDICATION
     Route: 065
  3. HEPARIN SODIUM. [Concomitant]
     Active Substance: HEPARIN SODIUM
     Indication: PRODUCT USED FOR UNKNOWN INDICATION
     Route: 065
     Dates: start: 20141216, end: 20141216
  4. BISACODYL. [Concomitant]
     Active Substance: BISACODYL
     Indication: PRODUCT USED FOR UNKNOWN INDICATION
     Dosage: UNK UNK, UNKNOWN
     Route: 065
  5. CEFAZOLIN [Suspect]
     Active Substance: CEFAZOLIN
     Indication: PRODUCT USED FOR UNKNOWN INDICATION
     Dosage: UNK UNK, UNKNOWN
     Route: 065
     Dates: start: 20191010
  6. METOPROLOL SUCCINATE. [Concomitant]
     Active Substance: METOPROLOL SUCCINATE
     Indication: PRODUCT USED FOR UNKNOWN INDICATION
     Route: 065
  7. FUROSEMIDE. [Concomitant]
     Active Substance: FUROSEMIDE
     Indication: PRODUCT USED FOR UNKNOWN INDICATION
     Route: 065
  8. PANTOPRAZOLE SODIUM SESQUIHYDRATE [Concomitant]
     Active Substance: PANTOPRAZOLE SODIUM
     Indication: PRODUCT USED FOR UNKNOWN INDICATION
     Route: 065
  9. MOXIFLOXACIN (MANUFACTURER UNKNOWN) [Suspect]
     Active Substance: MOXIFLOXACIN
     Indication: PRODUCT USED FOR UNKNOWN INDICATION
     Route: 051
     Dates: start: 2019
  10. GLYCERYL TRINITRATE [Suspect]
     Active Substance: NITROGLYCERIN
     Indication: PRODUCT USED FOR UNKNOWN INDICATION
     Route: 065
  11. AMIODARONE HYDROCHLORIDE. [Concomitant]
     Active Substance: AMIODARONE HYDROCHLORIDE
     Indication: PRODUCT USED FOR UNKNOWN INDICATION
     Route: 065
  12. LEVOTHYROXINE SODIUM. [Concomitant]
     Active Substance: LEVOTHYROXINE SODIUM
     Indication: HYPOTHYROIDISM
     Route: 065
     Dates: start: 20191010
  13. AMINOPHENAZONE [Concomitant]
     Active Substance: AMINOPHENAZONE
     Indication: PRODUCT USED FOR UNKNOWN INDICATION
     Route: 065
  14. AMIODARONE [Suspect]
     Active Substance: AMIODARONE
     Indication: PRODUCT USED FOR UNKNOWN INDICATION
     Route: 065
     Dates: start: 201011
  15. SALBUTAMOL SULFATE [Concomitant]
     Active Substance: ALBUTEROL SULFATE
     Indication: PNEUMONIA
     Route: 065
  16. ACENOCOUMAROL [Concomitant]
     Active Substance: ACENOCOUMAROL
     Indication: PRODUCT USED FOR UNKNOWN INDICATION
     Route: 065
  17. CLENBUTEROL HYDROCHLORIDE [Concomitant]
     Active Substance: CLENBUTEROL HYDROCHLORIDE
     Indication: PRODUCT USED FOR UNKNOWN INDICATION
     Route: 065
  18. PHYTOMENADIONE [Concomitant]
     Active Substance: PHYTONADIONE
     Indication: PRODUCT USED FOR UNKNOWN INDICATION
     Route: 065
     Dates: start: 20191117
  19. LIDOCAINE. [Suspect]
     Active Substance: LIDOCAINE
     Indication: PROPHYLAXIS
     Route: 065
     Dates: start: 20191029
  20. SACUBITRIL VALSARTAN SODIUM HYDRATE [Suspect]
     Active Substance: SACUBITRIL\VALSARTAN
     Indication: CARDIAC FAILURE
     Route: 065

REACTIONS (57)
  - Diarrhoea [Unknown]
  - Gastrointestinal motility disorder [Unknown]
  - Pulmonary congestion [Unknown]
  - Cough [Unknown]
  - Sinus bradycardia [Unknown]
  - Bundle branch block right [Unknown]
  - Angina pectoris [Unknown]
  - Shock [Unknown]
  - Pulmonary hypertension [Unknown]
  - Ventricular tachycardia [Unknown]
  - Ventricular extrasystoles [Unknown]
  - Exercise tolerance decreased [Unknown]
  - Ischaemic contracture of the left ventricle [Unknown]
  - Dilatation atrial [Unknown]
  - Tricuspid valve incompetence [Unknown]
  - Extrasystoles [Unknown]
  - Fall [Unknown]
  - Left ventricular dysfunction [Unknown]
  - Anuria [Not Recovered/Not Resolved]
  - Congestive cardiomyopathy [Unknown]
  - Multiple organ dysfunction syndrome [Unknown]
  - Essential hypertension [Unknown]
  - Hypokinesia [Unknown]
  - Asthenia [Not Recovered/Not Resolved]
  - Atrial fibrillation [Unknown]
  - Erysipelas [Unknown]
  - Cardiomegaly [Unknown]
  - Respiratory failure [Unknown]
  - Hypotension [Unknown]
  - Thyroid mass [Unknown]
  - Pneumonia [Unknown]
  - Ventricular remodelling [Unknown]
  - Normochromic anaemia [Unknown]
  - Hypothyroidism [Unknown]
  - Diverticulum intestinal [Unknown]
  - Abdominal distension [Recovering/Resolving]
  - Oedema peripheral [Recovering/Resolving]
  - Somnolence [Unknown]
  - Cardiac failure [Fatal]
  - Glomerular filtration rate [Unknown]
  - Fatigue [Unknown]
  - Weight decreased [Unknown]
  - Normocytic anaemia [Unknown]
  - Body temperature increased [Unknown]
  - Cardiovascular insufficiency [Unknown]
  - Dyspnoea [Unknown]
  - Decubitus ulcer [Unknown]
  - N-terminal prohormone brain natriuretic peptide increased [Unknown]
  - Joint injury [Unknown]
  - Atrial flutter [Unknown]
  - Sinus node dysfunction [Unknown]
  - Renal impairment [Unknown]
  - C-reactive protein increased [Recovering/Resolving]
  - Bundle branch block left [Unknown]
  - Mitral valve incompetence [Unknown]
  - Diaphragmatic disorder [Unknown]
  - Mucous stools [Recovering/Resolving]

NARRATIVE: CASE EVENT DATE: 201006
